FAERS Safety Report 15155270 (Version 1)
Quarter: 2018Q3

REPORT INFORMATION
  Report Type: Spontaneous
  Country: US (occurrence: US)
  Receive Date: 20180620
  Receipt Date: 20180620
  Transmission Date: 20181010
  Serious: Yes (Hospitalization, Other)
  Sender: FDA-Public Use
  Company Number: None

PATIENT
  Age: 82 Year
  Sex: Female
  Weight: 52.6 kg

DRUGS (5)
  1. EMEND (FOSAPREPITANT DIMEGLUMINE) [Concomitant]
     Active Substance: FOSAPREPITANT DIMEGLUMINE
     Dates: start: 20180619, end: 20180619
  2. OXALIPLATIN. [Suspect]
     Active Substance: OXALIPLATIN
     Indication: COLON CANCER
     Route: 041
     Dates: start: 20180619, end: 20180619
  3. LEUCOVORIN. [Concomitant]
     Active Substance: LEUCOVORIN
     Dates: start: 20180619, end: 20180619
  4. AVASTIN [Concomitant]
     Active Substance: BEVACIZUMAB
     Dates: start: 20180521, end: 20180619
  5. KYTRIL INJ [Concomitant]
     Dates: start: 20180619, end: 20180619

REACTIONS (9)
  - Confusional state [None]
  - Blood pressure decreased [None]
  - Heart rate increased [None]
  - Pallor [None]
  - Moaning [None]
  - Abdominal pain upper [None]
  - Oxygen saturation decreased [None]
  - Unresponsive to stimuli [None]
  - Flushing [None]

NARRATIVE: CASE EVENT DATE: 20180619
